FAERS Safety Report 5039153-3 (Version None)
Quarter: 2006Q2

REPORT INFORMATION
  Report Type: 
  Country: None (occurrence: None)
  Receive Date: 20060629
  Receipt Date: 20060621
  Transmission Date: 20061013
  Serious: Yes (Other)
  Sender: FDA-Public Use
  Company Number: GB-GLAXOSMITHKLINE-B0428485A

PATIENT
  Sex: Female

DRUGS (4)
  1. SEROXAT [Suspect]
     Indication: OBSESSIVE-COMPULSIVE DISORDER
     Route: 065
  2. ZOPICLONE [Concomitant]
     Route: 065
  3. ATENOLOL [Concomitant]
     Route: 065
  4. CLONAZEPAM [Concomitant]
     Route: 065

REACTIONS (8)
  - ANXIETY [None]
  - DRUG WITHDRAWAL SYNDROME [None]
  - INSOMNIA [None]
  - MUSCLE TWITCHING [None]
  - SELF MUTILATION [None]
  - SENSORY DISTURBANCE [None]
  - SUICIDAL IDEATION [None]
  - SUICIDE ATTEMPT [None]
